FAERS Safety Report 7958081-4 (Version None)
Quarter: 2011Q4

REPORT INFORMATION
  Report Type: 
  Country: None (occurrence: None)
  Receive Date: 20111205
  Receipt Date: 20111129
  Transmission Date: 20120403
  Serious: Yes (Death)
  Sender: FDA-Public Use
  Company Number: US-BAYER-2010-003171

PATIENT
  Age: 39 Year
  Sex: Female
  Weight: 93 kg

DRUGS (6)
  1. CIPROFLOXACIN [Concomitant]
     Dosage: 500 MG, UNK
  2. YAZ [Suspect]
     Indication: CONTRACEPTION
     Dosage: UNK
     Dates: start: 20080721, end: 20080922
  3. YASMIN [Suspect]
     Indication: CONTRACEPTION
     Dosage: UNK
     Dates: start: 20050701, end: 20070301
  4. FLUCONAZOLE [Concomitant]
     Dosage: 150 MG, UNK
  5. FLAVOXATE HCL [Concomitant]
     Dosage: 150 MG, UNK
  6. LASIX [Concomitant]
     Indication: OEDEMA
     Dosage: 40 MG, DAILY
     Route: 048
     Dates: start: 20070501, end: 20080922

REACTIONS (3)
  - PERIPHERAL COLDNESS [None]
  - CARDIO-RESPIRATORY ARREST [None]
  - PALLOR [None]
